FAERS Safety Report 13167354 (Version 2)
Quarter: 2017Q2

REPORT INFORMATION
  Report Type: Spontaneous
  Country: SK (occurrence: SK)
  Receive Date: 20170131
  Receipt Date: 20170531
  Transmission Date: 20170830
  Serious: Yes (Hospitalization, Other)
  Sender: FDA-Public Use
  Company Number: SK-GLAXOSMITHKLINE-SK2017GSK010258

PATIENT
  Age: 16 Year
  Sex: Female

DRUGS (1)
  1. RELVAR ELLIPTA [Suspect]
     Active Substance: FLUTICASONE FUROATE\VILANTEROL TRIFENATATE
     Indication: ASTHMA
     Dosage: UNK
     Route: 055
     Dates: start: 20160927

REACTIONS (6)
  - Dizziness [Recovered/Resolved]
  - Treatment noncompliance [Unknown]
  - Loss of consciousness [Recovered/Resolved]
  - Headache [Recovered/Resolved]
  - Asthma [Unknown]
  - Mental disorder [Unknown]

NARRATIVE: CASE EVENT DATE: 20160928
